FAERS Safety Report 7200799-5 (Version None)
Quarter: 2010Q4

REPORT INFORMATION
  Report Type: 
  Country: None (occurrence: None)
  Receive Date: 20101228
  Receipt Date: 20101214
  Transmission Date: 20110411
  Serious: Yes (Hospitalization)
  Sender: FDA-Public Use
  Company Number: JP-PFIZER INC-2010166938

PATIENT
  Age: 86 Year
  Sex: Male
  Weight: 59.3 kg

DRUGS (6)
  1. LIPITOR [Suspect]
     Indication: DYSLIPIDAEMIA
     Dosage: 5 MG, UID/QD
     Route: 048
     Dates: start: 20101114, end: 20101114
  2. MICARDIS [Concomitant]
     Indication: HYPERTENSION
     Dosage: UNK
  3. GASTER [Concomitant]
     Indication: GASTRITIS
     Dosage: 10 MG, UNK
  4. NORVASC [Concomitant]
     Indication: HYPERTENSION
     Dosage: UNK
     Route: 048
  5. SELBEX [Concomitant]
     Indication: GASTRITIS
     Dosage: UNK
     Route: 048
  6. VITAMEDIN CAPSULE [Concomitant]
     Indication: CEREBRAL INFARCTION
     Dosage: UNK

REACTIONS (2)
  - INTERSTITIAL LUNG DISEASE [None]
  - RHABDOMYOLYSIS [None]
